FAERS Safety Report 23790554 (Version 3)
Quarter: 2025Q4

REPORT INFORMATION
  Report Type: Report from Study
  Country: CA (occurrence: CA)
  Receive Date: 20240427
  Receipt Date: 20251024
  Transmission Date: 20260117
  Serious: Yes (Hospitalization, Other)
  Sender: NOVARTIS
  Company Number: CA-002147023-NVSC2024CA048507

PATIENT
  Age: 67 Year
  Sex: Female
  Weight: 59 kg

DRUGS (2)
  1. LEQVIO [Suspect]
     Active Substance: INCLISIRAN SODIUM
     Indication: Arteriosclerosis
     Dosage: 284 MG, OTHER (BASELINE, 3 MONTH THEN 6 MONTH THEREFORE)
     Route: 058
     Dates: start: 20240209
  2. LEQVIO [Suspect]
     Active Substance: INCLISIRAN SODIUM
     Dosage: UNK (SECOND INJECTION)
     Route: 065
     Dates: start: 20250324

REACTIONS (16)
  - Chest discomfort [Unknown]
  - Abdominal pain upper [Unknown]
  - Cardiac flutter [Unknown]
  - Rhinorrhoea [Recovered/Resolved]
  - Dry mouth [Recovered/Resolved]
  - Mood swings [Unknown]
  - Rash [Unknown]
  - Insomnia [Unknown]
  - Cough [Recovered/Resolved]
  - Headache [Unknown]
  - Pain in extremity [Not Recovered/Not Resolved]
  - Chest pain [Unknown]
  - Drug ineffective [Unknown]
  - Asthenia [Unknown]
  - Back pain [Unknown]
  - Alopecia [Not Recovered/Not Resolved]

NARRATIVE: CASE EVENT DATE: 20240201
